FAERS Safety Report 17636759 (Version 1)
Quarter: 2020Q2

REPORT INFORMATION
  Report Type: Spontaneous
  Country: US (occurrence: US)
  Receive Date: 20200406
  Receipt Date: 20200406
  Transmission Date: 20200713
  Serious: No
  Sender: FDA-Public Use
  Company Number: None

PATIENT
  Sex: Female
  Weight: 56.25 kg

DRUGS (2)
  1. VYZULTA [Concomitant]
     Active Substance: LATANOPROSTENE BUNOD
  2. PREDNISOLONE. [Suspect]
     Active Substance: PREDNISOLONE
     Dates: start: 20200101, end: 20200406

REACTIONS (10)
  - Blood glucose increased [None]
  - Fatigue [None]
  - Irritability [None]
  - Blood pressure fluctuation [None]
  - Dehydration [None]
  - Dyspnoea [None]
  - Depression [None]
  - Onychomycosis [None]
  - Hyperadrenocorticism [None]
  - Confusional state [None]
